FAERS Safety Report 14467763 (Version 2)
Quarter: 2018Q1

REPORT INFORMATION
  Report Type: Report from Study
  Country: GB (occurrence: GB)
  Receive Date: 20180131
  Receipt Date: 20180305
  Transmission Date: 20180509
  Serious: Yes (Hospitalization, Other)
  Sender: FDA-Public Use
  Company Number: PHHY2018GB009413

PATIENT
  Age: 79 Year
  Sex: Male

DRUGS (1)
  1. ENTRESTO [Suspect]
     Active Substance: SACUBITRIL\VALSARTAN
     Indication: CARDIAC FAILURE
     Dosage: 1 DF (49/51 MG), BID
     Route: 048
     Dates: start: 20171020

REACTIONS (15)
  - Atelectasis [Unknown]
  - Atrial septal defect [Unknown]
  - Cardiac failure [Unknown]
  - Cardiomegaly [Unknown]
  - Venous pressure jugular increased [Recovered/Resolved]
  - Rectal haemorrhage [Recovered/Resolved]
  - Tricuspid valve incompetence [Unknown]
  - Enterococcal infection [Unknown]
  - Oedema peripheral [Recovered/Resolved]
  - Weight increased [Recovered/Resolved]
  - Mitral valve incompetence [Unknown]
  - Pleural effusion [Unknown]
  - Lung consolidation [Unknown]
  - Haemorrhoids [Recovered/Resolved with Sequelae]
  - Endocarditis [Recovering/Resolving]

NARRATIVE: CASE EVENT DATE: 20171118
